FAERS Safety Report 25776871 (Version 1)
Quarter: 2025Q3

REPORT INFORMATION
  Report Type: Spontaneous
  Country: US (occurrence: US)
  Receive Date: 20250909
  Receipt Date: 20250909
  Transmission Date: 20251021
  Serious: Yes (Other)
  Sender: ABBVIE
  Company Number: US-ABBVIE-6449942

PATIENT
  Sex: Female

DRUGS (1)
  1. BOTOX [Suspect]
     Active Substance: ONABOTULINUMTOXINA
     Indication: Product used for unknown indication
     Route: 065

REACTIONS (7)
  - Botulism [Unknown]
  - Nerve injury [Unknown]
  - Pain [Unknown]
  - Migraine [Unknown]
  - Eye disorder [Unknown]
  - General symptom [Unknown]
  - Exercise lack of [Unknown]
